FAERS Safety Report 6199303-2 (Version None)
Quarter: 2009Q2

REPORT INFORMATION
  Report Type: 
  Country: None (occurrence: None)
  Receive Date: 20090519
  Receipt Date: 20090507
  Transmission Date: 20091009
  Serious: No
  Sender: FDA-Public Use
  Company Number: 2009-193951-NL

PATIENT
  Age: 34 Year
  Sex: Female

DRUGS (2)
  1. ETONOGESTREL [Suspect]
     Dosage: DF 3 YEARS 6 MONTHS/ NI
     Dates: start: 20020101, end: 20050701
  2. ETONOGESTREL [Suspect]
     Dosage: DF 3 YEARS 6 MONTHS/ NI
     Dates: start: 20050101

REACTIONS (3)
  - BREAST CANCER FEMALE [None]
  - OESTROGEN RECEPTOR ASSAY POSITIVE [None]
  - PROGESTERONE RECEPTOR ASSAY POSITIVE [None]
